FAERS Safety Report 4377875-8 (Version None)
Quarter: 2004Q2

REPORT INFORMATION
  Report Type: 
  Country: None (occurrence: None)
  Receive Date: 20040601
  Receipt Date: 20040209
  Transmission Date: 20050107
  Serious: No
  Sender: FDA-Public Use
  Company Number: WAES 0402USA00778

PATIENT
  Age: 60 Year
  Sex: Female

DRUGS (6)
  1. ZETIA [Suspect]
     Indication: HYPERCHOLESTEROLAEMIA
     Dosage: 10 MG DAILY PO
     Route: 048
     Dates: start: 20030724, end: 20040101
  2. ADVAIR DISKUS 100/50 [Concomitant]
  3. AMARYL [Concomitant]
  4. CLARINEX [Concomitant]
  5. SINGULAIR [Concomitant]
  6. ATENOLOL [Concomitant]

REACTIONS (1)
  - ABDOMINAL DISCOMFORT [None]
